FAERS Safety Report 4956080-8 (Version None)
Quarter: 2006Q1

REPORT INFORMATION
  Report Type: 
  Country: None (occurrence: None)
  Receive Date: 20060328
  Receipt Date: 20051205
  Transmission Date: 20060701
  Serious: Yes (Hospitalization, Disabling)
  Sender: FDA-Public Use
  Company Number: US-MERCK-0512USA00631

PATIENT
  Age: 44 Year
  Sex: Male
  Weight: 80 kg

DRUGS (12)
  1. VIOXX [Suspect]
     Indication: ARTHRITIS
     Route: 048
     Dates: start: 20020801, end: 20030101
  2. VIOXX [Suspect]
     Route: 048
     Dates: start: 20020801, end: 20030101
  3. VIOXX [Suspect]
     Indication: SKELETAL INJURY
     Route: 048
     Dates: start: 20020801, end: 20030101
  4. VIOXX [Suspect]
     Route: 048
     Dates: start: 20020801, end: 20030101
  5. ZESTRIL [Concomitant]
     Route: 065
     Dates: start: 20020801, end: 20021101
  6. TOPROL-XL [Concomitant]
     Indication: AORTIC VALVE REPLACEMENT
     Route: 065
     Dates: start: 20020801
  7. WARFARIN [Concomitant]
     Indication: AORTIC VALVE REPLACEMENT
     Route: 065
     Dates: start: 20020919
  8. METHADONE HYDROCHLORIDE [Concomitant]
     Indication: BACK PAIN
     Route: 065
     Dates: start: 20021029
  9. METHADONE HYDROCHLORIDE [Concomitant]
     Indication: ARTHRITIS
     Route: 065
     Dates: start: 20021029
  10. PERCOCET [Concomitant]
     Indication: ARTHRITIS
     Route: 065
     Dates: start: 20020919
  11. PERCOCET [Concomitant]
     Indication: ARTHRALGIA
     Route: 065
     Dates: start: 20020919
  12. TIZANIDINE HYDROCHLORIDE [Concomitant]
     Indication: MUSCLE DISORDER
     Route: 065
     Dates: start: 20021029

REACTIONS (8)
  - AORTIC VALVE REPLACEMENT [None]
  - BLOOD PRESSURE FLUCTUATION [None]
  - CEREBROVASCULAR ACCIDENT [None]
  - DYSPEPSIA [None]
  - ENDOCARDITIS [None]
  - HEART RATE DECREASED [None]
  - LOSS OF CONSCIOUSNESS [None]
  - SYNCOPE [None]
